FAERS Safety Report 12872905 (Version 1)
Quarter: 2016Q4

REPORT INFORMATION
  Report Type: Spontaneous
  Country: US (occurrence: US)
  Receive Date: 20161021
  Receipt Date: 20161021
  Transmission Date: 20170207
  Serious: Yes (Life-Threatening, Hospitalization, Other)
  Sender: FDA-Public Use
  Company Number: US-AMGEN-USASP2016143353

PATIENT
  Age: 69 Year
  Sex: Female
  Weight: 120.18 kg

DRUGS (6)
  1. LYRICA [Concomitant]
     Active Substance: PREGABALIN
     Indication: FIBROMYALGIA
  2. LASIX [Concomitant]
     Active Substance: FUROSEMIDE
     Dosage: UNK
  3. ENBREL [Suspect]
     Active Substance: ETANERCEPT
     Indication: RHEUMATOID ARTHRITIS
     Dosage: 50 MG, ONCE A WEEK
     Route: 065
     Dates: start: 2014
  4. LYRICA [Concomitant]
     Active Substance: PREGABALIN
     Indication: NEUROPATHY PERIPHERAL
     Dosage: 75MG TWICE A DAY
     Dates: start: 2012
  5. ENBREL [Suspect]
     Active Substance: ETANERCEPT
     Dosage: 25 MG, 2 TIMES/WK
     Route: 065
  6. PREDNISONE. [Concomitant]
     Active Substance: PREDNISONE
     Dosage: UNK

REACTIONS (14)
  - Hospitalisation [Unknown]
  - Influenza [Unknown]
  - Weight decreased [Unknown]
  - Hypophagia [Unknown]
  - Generalised oedema [Unknown]
  - Laboratory test abnormal [Unknown]
  - Pneumonia [Unknown]
  - Amnesia [Unknown]
  - Thrombosis [Unknown]
  - Wrong technique in product usage process [Unknown]
  - Tendon disorder [Unknown]
  - Drug dose omission [Unknown]
  - Blood potassium decreased [Unknown]
  - Injection site pain [Unknown]

NARRATIVE: CASE EVENT DATE: 2015
